FAERS Safety Report 9242916 (Version 1)
Quarter: 2013Q2

REPORT INFORMATION
  Report Type: Spontaneous
  Country: JP (occurrence: JP)
  Receive Date: 20130419
  Receipt Date: 20130419
  Transmission Date: 20140414
  Serious: Yes (Other)
  Sender: FDA-Public Use
  Company Number: JP-BAXTER-2013BAX014932

PATIENT
  Age: 23 Year
  Sex: Female

DRUGS (2)
  1. ENDOXAN 2000 MG, LYOPHILISAT POUR SOLUTION INJECTABLE [Suspect]
     Indication: BONE MARROW CONDITIONING REGIMEN
  2. CYTARABINE [Suspect]
     Indication: BONE MARROW CONDITIONING REGIMEN

REACTIONS (1)
  - Temporal lobe epilepsy [Recovering/Resolving]
